FAERS Safety Report 9752338 (Version 6)
Quarter: 2016Q2

REPORT INFORMATION
  Report Type: Report from Study
  Country: HU (occurrence: HU)
  Receive Date: 20131213
  Receipt Date: 20160427
  Transmission Date: 20160815
  Serious: Yes (Death, Hospitalization)
  Sender: FDA-Public Use
  Company Number: HU-TEVA-450248USA

PATIENT
  Age: 75 Year
  Sex: Male

DRUGS (14)
  1. BENDAMUSTINE [Suspect]
     Active Substance: BENDAMUSTINE
     Indication: NON-HODGKIN^S LYMPHOMA UNSPECIFIED HISTOLOGY INDOLENT
     Dosage: ONCE IN FOUR WEEKS
     Route: 042
     Dates: start: 20130925, end: 20131025
  2. BENDAMUSTINE [Suspect]
     Active Substance: BENDAMUSTINE
     Dosage: ONCE IN FOUR WEEKS
     Route: 042
     Dates: start: 20131025
  3. PANTOPRAZOLE [Concomitant]
     Active Substance: PANTOPRAZOLE SODIUM
     Indication: GASTRITIS EROSIVE
  4. PIRACETAM [Concomitant]
     Active Substance: PIRACETAM
     Indication: CEREBROVASCULAR DISORDER
  5. VERAPAMIL [Concomitant]
     Active Substance: VERAPAMIL HYDROCHLORIDE
     Indication: HYPERTENSION
  6. OXYGEN. [Concomitant]
     Active Substance: OXYGEN
     Indication: RESPIRATORY FAILURE
     Route: 065
     Dates: start: 20131217, end: 20131230
  7. BISOPROLOL [Concomitant]
     Active Substance: BISOPROLOL
     Indication: CARDIOVASCULAR DISORDER
  8. RITUXIMAB [Suspect]
     Active Substance: RITUXIMAB
     Dosage: WITH DRUG CONCENTRATION 1.52MG/ML ONCE IN FOUR WEEKS
     Route: 042
     Dates: start: 20131025
  9. BISOPROLOL [Concomitant]
     Active Substance: BISOPROLOL
     Indication: HYPERTENSION
  10. ASPIRIN. [Concomitant]
     Active Substance: ASPIRIN
     Indication: CARDIOVASCULAR DISORDER
  11. ENALAPRIL [Concomitant]
     Active Substance: ENALAPRIL
     Indication: HYPERTENSION
  12. RITUXIMAB [Suspect]
     Active Substance: RITUXIMAB
     Indication: NON-HODGKIN^S LYMPHOMA UNSPECIFIED HISTOLOGY INDOLENT
     Dosage: WITH DRUG CONCENTRATION 1.52MG/ML ONCE IN FOUR WEEKS
     Route: 042
     Dates: start: 20130925
  13. PIRACETAM [Concomitant]
     Active Substance: PIRACETAM
     Indication: ENCEPHALOPATHY
  14. THIAMAZOLE [Concomitant]
     Active Substance: METHIMAZOLE
     Indication: HYPERTHYROIDISM

REACTIONS (2)
  - Polyneuropathy [Recovered/Resolved]
  - Polyneuropathy [Fatal]

NARRATIVE: CASE EVENT DATE: 20131107
